FAERS Safety Report 6806485-5 (Version None)
Quarter: 2010Q2

REPORT INFORMATION
  Report Type: 
  Country: None (occurrence: None)
  Receive Date: 20100629
  Receipt Date: 20080304
  Transmission Date: 20101027
  Serious: Yes (Hospitalization)
  Sender: FDA-Public Use
  Company Number: US-PFIZER INC-2008020277

PATIENT

DRUGS (1)
  1. XANAX [Suspect]
     Indication: ANXIETY

REACTIONS (4)
  - DEHYDRATION [None]
  - DIARRHOEA [None]
  - FATIGUE [None]
  - SKIN FISSURES [None]
